FAERS Safety Report 7207222-5 (Version None)
Quarter: 2011Q1

REPORT INFORMATION
  Report Type: 
  Country: None (occurrence: None)
  Receive Date: 20110103
  Receipt Date: 20101230
  Transmission Date: 20110831
  Serious: Yes (Hospitalization)
  Sender: FDA-Public Use
  Company Number: IT-ROCHE-750196

PATIENT
  Sex: Male

DRUGS (1)
  1. LARIAM [Suspect]
     Indication: MALARIA PROPHYLAXIS
     Dosage: FREQUENCY: WEEKLY.
     Route: 048
     Dates: start: 20091209, end: 20091223

REACTIONS (2)
  - STATUS EPILEPTICUS [None]
  - PARTIAL SEIZURES [None]
